FAERS Safety Report 18809468 (Version 1)
Quarter: 2021Q1

REPORT INFORMATION
  Report Type: Spontaneous
  Country: CN (occurrence: CN)
  Receive Date: 20210129
  Receipt Date: 20210129
  Transmission Date: 20210419
  Serious: Yes (Other)
  Sender: FDA-Public Use
  Company Number: CN-PURDUE-USA-2021-0201253

PATIENT
  Age: 86 Year
  Sex: Female

DRUGS (2)
  1. NORSPAN [Suspect]
     Active Substance: BUPRENORPHINE
     Dosage: 5 MG, WEEKLY (STRENGTH 5 MG)
     Route: 062
     Dates: start: 20191114, end: 20191115
  2. ZYPREXA [Suspect]
     Active Substance: OLANZAPINE
     Indication: DELIRIUM
     Dosage: 2.5 MG, NOCTE
     Route: 048
     Dates: start: 20191114, end: 20191115

REACTIONS (6)
  - Respiratory depression [Recovering/Resolving]
  - Coma [Recovering/Resolving]
  - Miosis [Recovering/Resolving]
  - Delirium [Recovering/Resolving]
  - Pupillary reflex impaired [Recovering/Resolving]
  - Muscle rigidity [Recovering/Resolving]

NARRATIVE: CASE EVENT DATE: 20191115
